FAERS Safety Report 8335787-9 (Version None)
Quarter: 2012Q2

REPORT INFORMATION
  Report Type: 
  Country: None (occurrence: None)
  Receive Date: 20120504
  Receipt Date: 20120427
  Transmission Date: 20120825
  Serious: No
  Sender: FDA-Public Use
  Company Number: US-BIOGENIDEC-2012BI015120

PATIENT
  Sex: Female

DRUGS (2)
  1. COPAXONE [Concomitant]
  2. AVONEX [Suspect]
     Indication: PRODUCT USED FOR UNKNOWN INDICATION

REACTIONS (2)
  - GOITRE [None]
  - INFLUENZA LIKE ILLNESS [None]
